FAERS Safety Report 8912449 (Version 3)
Quarter: 2013Q3

REPORT INFORMATION
  Report Type: Report from Study
  Country: JP (occurrence: JP)
  Receive Date: 20121115
  Receipt Date: 20130701
  Transmission Date: 20140515
  Serious: Yes (Hospitalization)
  Sender: FDA-Public Use
  Company Number: JP-VERTEX PHARMACEUTICAL INC.-2012-024505

PATIENT
  Age: 57 Year
  Sex: Male

DRUGS (12)
  1. VX-950 (TELAPREVIR) [Suspect]
     Indication: CHRONIC HEPATITIS C
     Dosage: 2250 MG, QD
     Route: 048
     Dates: start: 20120702, end: 20120923
  2. REBETOL [Suspect]
     Indication: CHRONIC HEPATITIS C
     Dosage: 800 MG, QD
     Route: 048
     Dates: start: 20120702, end: 20121008
  3. REBETOL [Suspect]
     Dosage: 600MG,800MG/2 DAYS
     Route: 048
     Dates: start: 20121009
  4. PEGINTRON [Suspect]
     Indication: CHRONIC HEPATITIS C
     Dosage: 100 ?G, QW
     Route: 058
     Dates: start: 20120702
  5. AMARYL [Concomitant]
     Dosage: 2 MG, QD
     Route: 048
  6. ACTOS [Concomitant]
     Dosage: 15 MG, QD
     Route: 048
     Dates: end: 20120723
  7. LOXOPROFEN [Concomitant]
     Dosage: 60 MG, QD PRN
     Route: 048
     Dates: start: 20120702
  8. GOODMIN [Concomitant]
     Dosage: 0.25 MG, QD PRN
     Route: 048
     Dates: start: 20120703
  9. GOODMIN [Concomitant]
     Dosage: 0.25 MG, QD
     Route: 048
     Dates: end: 20120930
  10. KAMAG [Concomitant]
     Dosage: 9 G, QD
     Route: 048
  11. ALCENOL [Concomitant]
     Dosage: 12.5 MG, QD
     Route: 048
     Dates: end: 20121020
  12. NOVORAPID MIX [Concomitant]
     Dosage: 24 DF, QD
     Route: 058
     Dates: start: 20121022

REACTIONS (7)
  - Pyrexia [Recovered/Resolved]
  - Chills [Recovered/Resolved]
  - Headache [Recovered/Resolved]
  - Back pain [Recovered/Resolved]
  - Decreased appetite [Recovered/Resolved]
  - Malaise [Recovered/Resolved]
  - Nausea [Recovered/Resolved]
